FAERS Safety Report 9168515 (Version 2)
Quarter: 2013Q4

REPORT INFORMATION
  Report Type: Spontaneous
  Country: US (occurrence: US)
  Receive Date: 20130318
  Receipt Date: 20131122
  Transmission Date: 20140711
  Serious: Yes (Hospitalization, Other)
  Sender: FDA-Public Use
  Company Number: US-009507513-1303USA007526

PATIENT
  Sex: Female
  Weight: 36.28 kg

DRUGS (2)
  1. FOSAMAX [Suspect]
     Indication: OSTEOPOROSIS
     Dosage: 70 MG, WEEKLY
     Route: 048
     Dates: start: 20010105
  2. ALENDRONATE SODIUM [Suspect]
     Indication: OSTEOPOROSIS
     Dosage: 70 MG, WEEKLY
     Route: 048
     Dates: start: 200808, end: 201201

REACTIONS (15)
  - Femur fracture [Unknown]
  - Intramedullary rod insertion [Unknown]
  - Tibia fracture [Unknown]
  - Low turnover osteopathy [Unknown]
  - Upper limb fracture [Unknown]
  - Lower limb fracture [Unknown]
  - Osteoarthritis [Unknown]
  - Fracture [Unknown]
  - Hypercholesterolaemia [Unknown]
  - Barrel chest [Unknown]
  - Spinal deformity [Unknown]
  - Peripheral vascular disorder [Unknown]
  - Hypertension [Unknown]
  - Blood albumin decreased [Unknown]
  - Osteopenia [Unknown]
